FAERS Safety Report 5743045-1 (Version None)
Quarter: 2008Q2

REPORT INFORMATION
  Report Type: 
  Country: None (occurrence: None)
  Receive Date: 20080519
  Receipt Date: 20080509
  Transmission Date: 20081010
  Serious: Yes (Other)
  Sender: FDA-Public Use
  Company Number: GB-ABBOTT-08P-167-0451556-00

PATIENT
  Sex: Female

DRUGS (6)
  1. VALPROIC ACID [Suspect]
     Indication: EPILEPSY
     Dosage: 2.4 GRAMS DAILY
     Dates: start: 20010101
  2. VALPROIC ACID [Suspect]
     Dates: end: 19960101
  3. VALPROIC ACID [Suspect]
     Dosage: 2 GRAMS DAILY
     Dates: start: 19960101, end: 20010101
  4. VALPROIC ACID [Suspect]
     Dosage: 2.4 GRAMS DAILY
     Dates: start: 20010101
  5. FOLIC ACID [Concomitant]
     Indication: DRUG USE FOR UNKNOWN INDICATION
     Dates: start: 19970101
  6. LAMOTRIGINE [Concomitant]
     Indication: DRUG USE FOR UNKNOWN INDICATION
     Dates: start: 20040101

REACTIONS (2)
  - EPILEPSY [None]
  - GRAND MAL CONVULSION [None]
